FAERS Safety Report 6071901-6 (Version None)
Quarter: 2009Q1

REPORT INFORMATION
  Report Type: 
  Country: None (occurrence: None)
  Receive Date: 20090210
  Receipt Date: 20090203
  Transmission Date: 20090719
  Serious: Yes (Hospitalization)
  Sender: FDA-Public Use
  Company Number: US-BAYER-200912466NA

PATIENT
  Age: 61 Year
  Sex: Female
  Weight: 111 kg

DRUGS (1)
  1. BETASERON [Suspect]
     Indication: MULTIPLE SCLEROSIS
     Route: 058
     Dates: start: 20050101

REACTIONS (4)
  - DECUBITUS ULCER [None]
  - DEPRESSION [None]
  - MULTIPLE SCLEROSIS [None]
  - MUSCLE SPASMS [None]
